FAERS Safety Report 16110232 (Version 2)
Quarter: 2019Q2

REPORT INFORMATION
  Report Type: Report from Study
  Country: None (occurrence: CL)
  Receive Date: 20190325
  Receipt Date: 20190418
  Transmission Date: 20190711
  Serious: Yes (Other)
  Sender: FDA-Public Use
  Company Number: CL-ABBVIE-19K-034-2715146-00

PATIENT
  Age: 10 Year
  Sex: Female
  Weight: 46 kg

DRUGS (1)
  1. HUMIRA [Suspect]
     Active Substance: ADALIMUMAB
     Indication: JUVENILE IDIOPATHIC ARTHRITIS
     Route: 058
     Dates: start: 20181122

REACTIONS (6)
  - Musculoskeletal pain [Unknown]
  - Dysstasia [Unknown]
  - Fibromyalgia [Unknown]
  - Juvenile idiopathic arthritis [Recovering/Resolving]
  - Muscle spasms [Unknown]
  - Spinal pain [Unknown]

NARRATIVE: CASE EVENT DATE: 20190320
